FAERS Safety Report 5763314-9 (Version None)
Quarter: 2008Q2

REPORT INFORMATION
  Report Type: 
  Country: None (occurrence: None)
  Receive Date: 20080602
  Receipt Date: 20080306
  Transmission Date: 20081010
  Serious: No
  Sender: FDA-Public Use
  Company Number: PHEH2008US02529

PATIENT
  Age: 59 Year
  Sex: Female
  Weight: 54.4 kg

DRUGS (1)
  1. TEKTURNA [Suspect]
     Dosage: 150 MG, QD, UNK

REACTIONS (1)
  - HYPONATRAEMIA [None]
